FAERS Safety Report 8259832-4 (Version None)
Quarter: 2012Q2

REPORT INFORMATION
  Report Type: 
  Country: None (occurrence: None)
  Receive Date: 20120404
  Receipt Date: 20120330
  Transmission Date: 20120825
  Serious: Yes (Hospitalization)
  Sender: FDA-Public Use
  Company Number: US-GLAXOSMITHKLINE-A0925552A

PATIENT
  Age: 55 Year
  Sex: Male
  Weight: 72.3 kg

DRUGS (4)
  1. VIAGRA [Concomitant]
  2. AVANDIA [Suspect]
     Indication: DIABETES MELLITUS
     Dosage: 4MG PER DAY
     Route: 048
     Dates: start: 20030901, end: 20060101
  3. GLIMEPIRIDE [Concomitant]
  4. LIPITOR [Concomitant]

REACTIONS (7)
  - MYOCARDIAL INFARCTION [None]
  - RESPIRATORY ARREST [None]
  - VENTRICULAR TACHYCARDIA [None]
  - CORONARY ARTERY DISEASE [None]
  - ATRIAL FIBRILLATION [None]
  - CARDIAC DISORDER [None]
  - BRADYCARDIA [None]
